FAERS Safety Report 6271784-5 (Version None)
Quarter: 2009Q3

REPORT INFORMATION
  Report Type: 
  Country: None (occurrence: None)
  Receive Date: 20090717
  Receipt Date: 20090709
  Transmission Date: 20100115
  Serious: Yes (Hospitalization, Other)
  Sender: FDA-Public Use
  Company Number: GB-JNJFOC-20060903075

PATIENT
  Age: 62 Year
  Sex: Female
  Weight: 163 kg

DRUGS (5)
  1. TRAMADOL HCL [Suspect]
     Indication: BACK PAIN
     Route: 065
  2. CLOZARIL [Suspect]
     Indication: SCHIZOPHRENIA
     Route: 048
  3. ATORVASTATIN CALCIUM [Concomitant]
     Indication: HYPERCHOLESTEROLAEMIA
     Route: 048
  4. ISOSORBIDE MONONITRATE [Concomitant]
     Indication: ANGINA PECTORIS
  5. OMEPRAZOLE [Concomitant]
     Indication: DUODENAL ULCER

REACTIONS (9)
  - ANAEMIA [None]
  - BLOOD PRESSURE FLUCTUATION [None]
  - GASTROINTESTINAL HAEMORRHAGE [None]
  - IRON DEFICIENCY [None]
  - MEAN CELL VOLUME DECREASED [None]
  - NEUTROPHIL COUNT INCREASED [None]
  - PLATELET COUNT DECREASED [None]
  - PLATELET COUNT INCREASED [None]
  - WHITE BLOOD CELL COUNT INCREASED [None]
